FAERS Safety Report 16285077 (Version 2)
Quarter: 2019Q2

REPORT INFORMATION
  Report Type: Spontaneous
  Country: US (occurrence: US)
  Receive Date: 20190508
  Receipt Date: 20190509
  Transmission Date: 20190711
  Serious: Yes (Other)
  Sender: FDA-Public Use
  Company Number: US-DENTSPLY-2019SCDP000275

PATIENT
  Age: 5 Month

DRUGS (1)
  1. PRILOCAINE AND LIDOCAINE [Suspect]
     Active Substance: LIDOCAINE\PRILOCAINE
     Indication: ANAESTHESIA
     Dosage: 2.5 % EUTECTIC MIXTURE PRILOCAINE AND LIOCAINE
     Route: 061

REACTIONS (1)
  - Dermatitis bullous [Unknown]
